FAERS Safety Report 4309783-2 (Version None)
Quarter: 2004Q1

REPORT INFORMATION
  Report Type: 
  Country: None (occurrence: None)
  Receive Date: 20040301
  Receipt Date: 20030725
  Transmission Date: 20041129
  Serious: Yes (Hospitalization)
  Sender: FDA-Public Use
  Company Number: USA030741501

PATIENT
  Sex: Female

DRUGS (5)
  1. PERMAX [Suspect]
     Indication: PARKINSON'S DISEASE
  2. SINEMET [Concomitant]
  3. SINEMET CR [Concomitant]
  4. MULTIVITAMIN [Concomitant]
  5. TAMOXIFEN CITRATE [Concomitant]

REACTIONS (1)
  - FALL [None]
